FAERS Safety Report 10638536 (Version 2)
Quarter: 2014Q4

REPORT INFORMATION
  Report Type: Spontaneous
  Country: US (occurrence: None)
  Receive Date: 20141204
  Receipt Date: 20141231
  Transmission Date: 20150529
  Serious: Yes (Other)
  Sender: FDA-Public Use
  Company Number: US-RRD-14-00128

PATIENT
  Sex: Female
  Weight: 61.24 kg

DRUGS (4)
  1. TRANXENE T-TAB [Suspect]
     Active Substance: CLORAZEPATE DIPOTASSIUM
     Indication: ANXIETY
     Dosage: 30 MG (15 MG, 2 IN 1 D), ORAL
     Route: 048
  2. ZONEGRAN (ZONISAMIDE) (UNKNOWN) (ZONISAMIDE)? [Concomitant]
  3. TEGRETAL (CARBAMAZEPINE) (UNKNOWN) (CARBAMAZEPINE)? [Concomitant]
  4. TRANXENE T-TAB [Suspect]
     Active Substance: CLORAZEPATE DIPOTASSIUM
     Indication: SEIZURE
     Dosage: 30 MG (15 MG, 2 IN 1 D), ORAL
     Route: 048

REACTIONS (6)
  - No therapeutic response [None]
  - Seizure [None]
  - Anxiety [None]
  - Nephrolithiasis [None]
  - Malabsorption [None]
  - Fall [None]
